FAERS Safety Report 4285654-5 (Version None)
Quarter: 2004Q1

REPORT INFORMATION
  Report Type: 
  Country: None (occurrence: None)
  Receive Date: 20040204
  Receipt Date: 20040204
  Transmission Date: 20041129
  Serious: No
  Sender: FDA-Public Use
  Company Number: None

PATIENT
  Sex: 0

DRUGS (1)
  1. TRI-NESSA (WATSON'S GENERIC ORTHO TRI-CYCLEN) [Suspect]

REACTIONS (3)
  - MENSTRUATION IRREGULAR [None]
  - METRORRHAGIA [None]
  - PHARMACEUTICAL PRODUCT COMPLAINT [None]
